FAERS Safety Report 11179913 (Version 1)
Quarter: 2015Q2

REPORT INFORMATION
  Report Type: Spontaneous
  Country: US (occurrence: US)
  Receive Date: 20150611
  Receipt Date: 20150611
  Transmission Date: 20150821
  Serious: No
  Sender: FDA-Public Use
  Company Number: US-BAYER-2015-324380

PATIENT

DRUGS (1)
  1. MIDOL [Suspect]
     Active Substance: IBUPROFEN
     Dosage: 8 DF, IN 8 HOURS
     Route: 048

REACTIONS (3)
  - Pain [Unknown]
  - Nausea [Unknown]
  - Product use issue [Unknown]
